FAERS Safety Report 5112825-8 (Version None)
Quarter: 2006Q3

REPORT INFORMATION
  Report Type: 
  Country: None (occurrence: None)
  Receive Date: 20060922
  Receipt Date: 20060913
  Transmission Date: 20061208
  Serious: Yes (Life-Threatening)
  Sender: FDA-Public Use
  Company Number: HU-BOEHRINGER INGELHEIM PHARMACEUTICALS, INC.-2006-DE-04902GD

PATIENT

DRUGS (1)
  1. DIPYRIDAMOLE [Suspect]
     Indication: STRESS ECHOCARDIOGRAM

REACTIONS (1)
  - VENTRICULAR TACHYCARDIA [None]
